FAERS Safety Report 5602769-7 (Version None)
Quarter: 2008Q1

REPORT INFORMATION
  Report Type: 
  Country: None (occurrence: None)
  Receive Date: 20080125
  Receipt Date: 20080115
  Transmission Date: 20080703
  Serious: Yes (Other)
  Sender: FDA-Public Use
  Company Number: IT-ABBOTT-08P-083-0433624-00

PATIENT

DRUGS (1)
  1. CYCLOSPORINE [Suspect]
     Indication: AUTOIMMUNE HEPATITIS
     Dosage: NOT REPORTED

REACTIONS (1)
  - HEPATIC FAILURE [None]
